FAERS Safety Report 15524463 (Version 1)
Quarter: 2018Q4

REPORT INFORMATION
  Report Type: Report from Study
  Country: BR (occurrence: BR)
  Receive Date: 20181019
  Receipt Date: 20181019
  Transmission Date: 20190205
  Serious: Yes (Death, Hospitalization)
  Sender: FDA-Public Use
  Company Number: PHHY2018BR124143

PATIENT
  Sex: Female
  Weight: 46.5 kg

DRUGS (2)
  1. DUOTRAVATAN [BAC] [Suspect]
     Active Substance: TIMOLOL MALEATE\TRAVOPROST
     Indication: GLAUCOMA
     Dosage: 2.5 ML, UNK
     Route: 047
  2. DUOTRAVATAN [BAC] [Suspect]
     Active Substance: TIMOLOL MALEATE\TRAVOPROST
     Dosage: 5 ML, UNK (1 DROP IN EACH EYE)
     Route: 047
     Dates: start: 201109, end: 201808

REACTIONS (4)
  - General physical health deterioration [Fatal]
  - Intestinal ischaemia [Fatal]
  - Thrombosis [Fatal]
  - Malaise [Fatal]
